FAERS Safety Report 21598411 (Version 1)
Quarter: 2022Q4

REPORT INFORMATION
  Report Type: Spontaneous
  Country: GB (occurrence: DK)
  Receive Date: 20221115
  Receipt Date: 20221115
  Transmission Date: 20230113
  Serious: Yes (Hospitalization, Other)
  Sender: FDA-Public Use
  Company Number: None

PATIENT

DRUGS (6)
  1. LATUDA [Suspect]
     Active Substance: LURASIDONE HYDROCHLORIDE
     Indication: Schizophrenia
     Dosage: INCREASED DOSE
     Route: 048
     Dates: start: 201804, end: 2019
  2. LATUDA [Suspect]
     Active Substance: LURASIDONE HYDROCHLORIDE
     Dosage: UNK, QD
     Route: 048
  3. RISPERDAL [Suspect]
     Active Substance: RISPERIDONE
     Indication: Schizotypal personality disorder
     Dosage: UNK
     Route: 065
     Dates: start: 2014, end: 20140623
  4. SERTINDOLE [Suspect]
     Active Substance: SERTINDOLE
     Indication: Schizophrenia
     Dosage: UNK
     Route: 065
     Dates: end: 2019
  5. ABILIFY [Suspect]
     Active Substance: ARIPIPRAZOLE
     Indication: Schizotypal personality disorder
     Dosage: 5 MG
     Route: 065
     Dates: start: 20140623
  6. ZELDOX [Suspect]
     Active Substance: ZIPRASIDONE
     Indication: Schizophrenia
     Dosage: UNK
     Route: 065
     Dates: start: 2016

REACTIONS (2)
  - Psychotic symptom [Unknown]
  - Hallucination, auditory [Unknown]

NARRATIVE: CASE EVENT DATE: 20150101
